FAERS Safety Report 5300246-4 (Version None)
Quarter: 2007Q2

REPORT INFORMATION
  Report Type: 
  Country: None (occurrence: None)
  Receive Date: 20070411
  Receipt Date: 20070326
  Transmission Date: 20071010
  Serious: Yes (Other)
  Sender: FDA-Public Use
  Company Number: DSA_61473_2007

PATIENT
  Age: 4 Year
  Sex: Male
  Weight: 20.8655 kg

DRUGS (4)
  1. DIASTAT [Suspect]
     Indication: ACCIDENTAL EXPOSURE
     Dosage: 10 MG ONCE PO
     Route: 048
     Dates: start: 20070324, end: 20070324
  2. DIASTAT [Suspect]
     Indication: ACCIDENTAL EXPOSURE
     Dosage: 5 MG PRN RC
  3. NEURONTIN [Concomitant]
  4. DEPAKOTE [Concomitant]

REACTIONS (3)
  - CIRCUMSTANCE OR INFORMATION CAPABLE OF LEADING TO MEDICATION ERROR [None]
  - INCORRECT ROUTE OF DRUG ADMINISTRATION [None]
  - SOMNOLENCE [None]
